FAERS Safety Report 15532745 (Version 1)
Quarter: 2018Q4

REPORT INFORMATION
  Report Type: Spontaneous
  Country: US (occurrence: US)
  Receive Date: 20181019
  Receipt Date: 20181019
  Transmission Date: 20190205
  Serious: No
  Sender: FDA-Public Use
  Company Number: US-PFIZER INC-2018421456

PATIENT
  Age: 45 Year
  Sex: Female

DRUGS (4)
  1. LYRICA [Suspect]
     Active Substance: PREGABALIN
     Indication: PAIN IN EXTREMITY
     Dosage: 225 MG, DAILY (ONE CAPSULE IN THE MORNING AND TWO CAPSULES AT NIGHT)
  2. LYRICA [Suspect]
     Active Substance: PREGABALIN
     Indication: HYPOAESTHESIA
     Dosage: 225 MG, DAILY (ONE CAPSULE IN THE MORNING AND TWO CAPSULES AT NIGHT)
  3. EFFEXOR XR [Suspect]
     Active Substance: VENLAFAXINE HYDROCHLORIDE
     Dosage: UNK
  4. LYRICA [Suspect]
     Active Substance: PREGABALIN
     Indication: NEUROLOGICAL PROCEDURAL COMPLICATION
     Dosage: 225 MG, DAILY (ONE CAPSULE IN THE MORNING AND TWO CAPSULES AT NIGHT)

REACTIONS (1)
  - Weight increased [Recovering/Resolving]
